FAERS Safety Report 4280035-2 (Version None)
Quarter: 2004Q1

REPORT INFORMATION
  Report Type: 
  Country: None (occurrence: None)
  Receive Date: 20040126
  Receipt Date: 20040112
  Transmission Date: 20041129
  Serious: Yes (Death)
  Sender: FDA-Public Use
  Company Number: 2004002185

PATIENT
  Age: 54 Year
  Sex: Female

DRUGS (2)
  1. ZIPRASIDONE (CAPS) (ZIPRASIDONE) [Suspect]
     Indication: SCHIZOPHRENIA
     Dosage: 16 MG (BID), ORAL
     Route: 048
     Dates: start: 20031221, end: 20031223
  2. VALPROATE MAGNESIUM (VALPROATE MAGNESIUM) [Concomitant]

REACTIONS (4)
  - ABDOMINAL PAIN UPPER [None]
  - ACUTE MYOCARDIAL INFARCTION [None]
  - HYPOTENSION [None]
  - RESPIRATORY FAILURE [None]
